FAERS Safety Report 7659415-0 (Version None)
Quarter: 2011Q3

REPORT INFORMATION
  Report Type: 
  Country: None (occurrence: None)
  Receive Date: 20110804
  Receipt Date: 20110804
  Transmission Date: 20111222
  Serious: No
  Sender: FDA-Public Use
  Company Number: None

PATIENT
  Sex: Male
  Weight: 87.0906 kg

DRUGS (3)
  1. CYMBALTA [Suspect]
     Indication: PAIN MANAGEMENT
     Dosage: 30 MG 1 / DAY
     Dates: start: 20110613
  2. CYMBALTA [Suspect]
     Indication: PAIN MANAGEMENT
     Dosage: 30 MG 1 / DAY
     Dates: start: 20110614
  3. CYMBALTA [Suspect]
     Indication: PAIN MANAGEMENT
     Dosage: 30 MG 1 / DAY
     Dates: start: 20110612

REACTIONS (1)
  - DYSURIA [None]
